FAERS Safety Report 4893363-4 (Version None)
Quarter: 2006Q1

REPORT INFORMATION
  Report Type: 
  Country: None (occurrence: None)
  Receive Date: 20060124
  Receipt Date: 20060113
  Transmission Date: 20060701
  Serious: Yes (Hospitalization, Other)
  Sender: FDA-Public Use
  Company Number: 2006008801

PATIENT
  Age: 34 Year
  Sex: Female
  Weight: 79.3795 kg

DRUGS (6)
  1. ZOLOFT [Suspect]
     Indication: DEPRESSION
     Dosage: 200 MG (1 IN 1 D)
  2. ZYPREXA [Suspect]
     Indication: DEPRESSION
     Dosage: 10 MG (10 MG, 1 IN 1 D)
     Dates: end: 20050101
  3. WELLBUTRIN [Suspect]
     Indication: DEPRESSION
     Dosage: 300 MG
     Dates: start: 20050101
  4. ACIPHEX [Concomitant]
  5. MONTELUKAST SODIUM (MONTELUKAST SODIUM) [Concomitant]
  6. NASONEX [Concomitant]

REACTIONS (6)
  - BLOOD POTASSIUM DECREASED [None]
  - DIVERTICULUM [None]
  - EMPHYSEMA [None]
  - NEUROPATHY PERIPHERAL [None]
  - OVARIAN CYST [None]
  - WEIGHT INCREASED [None]
